FAERS Safety Report 4362024-2 (Version None)
Quarter: 2004Q2

REPORT INFORMATION
  Report Type: 
  Country: None (occurrence: None)
  Receive Date: 20040521
  Receipt Date: 20040218
  Transmission Date: 20050107
  Serious: No
  Sender: FDA-Public Use
  Company Number: US-GLAXOSMITHKLINE-A0498737A

PATIENT
  Age: 36 Year
  Sex: Female

DRUGS (3)
  1. WELLBUTRIN XL [Suspect]
     Indication: DEPRESSION
     Dosage: 150TAB PER DAY
     Route: 048
     Dates: start: 20040217
  2. PRILOSEC [Concomitant]
  3. KLONOPIN [Concomitant]

REACTIONS (2)
  - HYPERHIDROSIS [None]
  - TREMOR [None]
